FAERS Safety Report 25728835 (Version 1)
Quarter: 2025Q3

REPORT INFORMATION
  Report Type: Spontaneous
  Country: BR (occurrence: BR)
  Receive Date: 20250826
  Receipt Date: 20250826
  Transmission Date: 20251020
  Serious: Yes (Other)
  Sender: NOVO NORDISK
  Company Number: BR-NOVOPROD-1504216

PATIENT
  Age: 27 Year
  Sex: Female

DRUGS (2)
  1. RYBELSUS [Suspect]
     Active Substance: SEMAGLUTIDE
     Indication: Glucose tolerance impaired
  2. RYBELSUS [Suspect]
     Active Substance: SEMAGLUTIDE
     Indication: Obesity

REACTIONS (6)
  - Pruritus [Unknown]
  - Pharyngeal swelling [Unknown]
  - Dyspnoea [Unknown]
  - Swollen tongue [Unknown]
  - Swelling face [Unknown]
  - Off label use [Recovered/Resolved]
